FAERS Safety Report 5837601-X (Version None)
Quarter: 2008Q3

REPORT INFORMATION
  Report Type: 
  Country: None (occurrence: None)
  Receive Date: 20080807
  Receipt Date: 20080728
  Transmission Date: 20090109
  Serious: Yes (Other)
  Sender: FDA-Public Use
  Company Number: PHHY2008JP12299

PATIENT
  Sex: Male
  Weight: 50 kg

DRUGS (12)
  1. ZOMETA [Suspect]
     Indication: MULTIPLE MYELOMA
     Dosage: UNK
     Route: 042
     Dates: start: 20060629
  2. ZOMETA [Suspect]
     Indication: METASTASES TO BONE
  3. AREDIA [Suspect]
     Indication: MULTIPLE MYELOMA
     Dosage: UNK
     Route: 042
     Dates: start: 20060101, end: 20060629
  4. AREDIA [Suspect]
     Indication: METASTASES TO BONE
  5. DECADRON [Concomitant]
     Indication: MULTIPLE MYELOMA
     Dosage: 10 MG/DAY
     Route: 048
  6. ALKERAN [Concomitant]
     Indication: MULTIPLE MYELOMA
     Dosage: 0.25 DF
     Route: 048
  7. HARNAL [Concomitant]
     Indication: BENIGN PROSTATIC HYPERPLASIA
     Dosage: 0.2DF
     Route: 048
  8. OFLOXACIN [Concomitant]
     Indication: MULTIPLE MYELOMA
     Dosage: 100 MG/DAY
     Route: 048
  9. ASPIRIN [Concomitant]
     Indication: ANGINA PECTORIS
     Dosage: 100MG
     Route: 048
  10. DIFLUCAN [Concomitant]
     Dosage: 100MG
     Route: 048
  11. SELBEX [Concomitant]
     Indication: GASTRIC ULCER
     Dosage: 50MG
     Route: 048
  12. PREDONINE [Concomitant]
     Indication: MULTIPLE MYELOMA
     Dosage: 5 MG/DAY
     Route: 048

REACTIONS (10)
  - BONE DISORDER [None]
  - DENTAL FISTULA [None]
  - GINGIVAL ABSCESS [None]
  - GINGIVAL SWELLING [None]
  - GINGIVAL ULCERATION [None]
  - OSTEITIS [None]
  - PAIN IN JAW [None]
  - PURULENT DISCHARGE [None]
  - TOOTH ABSCESS [None]
  - TOOTH INFECTION [None]
